FAERS Safety Report 5615133-1 (Version None)
Quarter: 2008Q1

REPORT INFORMATION
  Report Type: 
  Country: None (occurrence: None)
  Receive Date: 20080206
  Receipt Date: 20070706
  Transmission Date: 20080703
  Serious: Yes (Other)
  Sender: FDA-Public Use
  Company Number: A0659698A

PATIENT
  Age: 54 Year
  Sex: Female
  Weight: 50.5 kg

DRUGS (1)
  1. ARIXTRA [Suspect]
     Dosage: 2.5MG SEE DOSAGE TEXT
     Route: 058
     Dates: start: 20070530, end: 20070605

REACTIONS (1)
  - WOUND HAEMORRHAGE [None]
